FAERS Safety Report 23495794 (Version 1)
Quarter: 2024Q1

REPORT INFORMATION
  Report Type: Spontaneous
  Country: US (occurrence: None)
  Receive Date: 20240206
  Receipt Date: 20240206
  Transmission Date: 20240410
  Serious: Yes (Hospitalization)
  Sender: FDA-Public Use
  Company Number: None

PATIENT
  Age: 47 Year
  Sex: Female
  Weight: 79.38 kg

DRUGS (1)
  1. NURTEC ODT [Suspect]
     Active Substance: RIMEGEPANT SULFATE
     Indication: Migraine prophylaxis
     Dosage: FREQUENCY : EVERY OTHER DAY;?
     Route: 048

REACTIONS (3)
  - Inappropriate schedule of product administration [None]
  - Blindness [None]
  - Migraine [None]

NARRATIVE: CASE EVENT DATE: 20240131
